FAERS Safety Report 8649058 (Version 2)
Quarter: 2012Q4

REPORT INFORMATION
  Report Type: 
  Country: NL (occurrence: NL)
  Receive Date: 20120704
  Receipt Date: 20120924
  Transmission Date: 20130627
  Serious: Yes (Hospitalization)
  Sender: FDA-Public Use
  Company Number: PHHY2012NL056876

PATIENT
  Age: 61 Year
  Sex: Male
  Weight: 97 kg

DRUGS (12)
  1. ZOMETA [Suspect]
     Indication: PROSTATE CANCER
     Dosage: 4 mg / 100 ml for every 28 days
     Route: 042
     Dates: start: 20110610
  2. ZOMETA [Suspect]
     Dosage: 4 mg / 100 ml for every 28 days
     Route: 042
     Dates: start: 20120515
  3. ZOMETA [Suspect]
     Dosage: 4 mg / 100 ml for every 28 days
     Route: 042
     Dates: start: 20120608
  4. PREDNISONE [Suspect]
     Dosage: 10 mg, UNK
  5. SALICYLATES [Concomitant]
  6. OMEPRAZOLE [Concomitant]
     Dosage: 20 mg, UNK
  7. AMLODIPINE [Concomitant]
  8. CALCICHEW [Concomitant]
  9. FUROSEMIDE [Concomitant]
     Dosage: 40 mg, UNK
  10. LISINOPRIL [Concomitant]
     Dosage: 10 mg, UNK
  11. ALLOPURINOL [Concomitant]
  12. ZOLADEX [Concomitant]

REACTIONS (4)
  - Blood glucose increased [Recovering/Resolving]
  - Polydipsia [Recovering/Resolving]
  - Chronic obstructive pulmonary disease [Recovering/Resolving]
  - Dyspnoea [Recovering/Resolving]
